FAERS Safety Report 8226076-1 (Version None)
Quarter: 2012Q1

REPORT INFORMATION
  Report Type: 
  Country: None (occurrence: None)
  Receive Date: 20120319
  Receipt Date: 20120307
  Transmission Date: 20120608
  Serious: Yes (Other)
  Sender: FDA-Public Use
  Company Number: 2012MA002677

PATIENT
  Age: 41 Year
  Sex: Female
  Weight: 110 kg

DRUGS (7)
  1. LEVETIRACETAM [Suspect]
     Indication: EPILEPSY
     Dosage: 1000 MG;BID
     Dates: start: 20120110, end: 20120216
  2. ESOMEPRAZOLE [Concomitant]
  3. KEPPRA [Concomitant]
  4. PAROXETINE [Concomitant]
  5. HYDROCHLOROTHIAZIDE [Concomitant]
  6. DESOGESTREL [Concomitant]
  7. ETORICOXIB [Concomitant]

REACTIONS (1)
  - EPILEPSY [None]
